FAERS Safety Report 14514117 (Version 2)
Quarter: 2018Q1

REPORT INFORMATION
  Report Type: Spontaneous
  Country: US (occurrence: MX)
  Receive Date: 20180209
  Receipt Date: 20180220
  Transmission Date: 20180509
  Serious: Yes (Other)
  Sender: FDA-Public Use
  Company Number: US-SUNOVION-2018SUN000500

PATIENT
  Age: 83 Year
  Sex: Female

DRUGS (2)
  1. INDACATEROL AND GLYCOPYRROLATE [Suspect]
     Active Substance: GLYCOPYRROLATE\INDACATEROL MALEATE
     Indication: CHRONIC OBSTRUCTIVE PULMONARY DISEASE
     Dosage: 1 DF, QD, CAPSULE, REGIMEN#1
     Route: 055
     Dates: start: 20180121, end: 20180123
  2. IRFLOSOL [Suspect]
     Active Substance: FLUTICASONE PROPIONATE\SALMETEROL XINAFOATE
     Indication: CHRONIC OBSTRUCTIVE PULMONARY DISEASE
     Dosage: 1 DF, QD. 50/250 UG; REGIMEN#1
     Route: 055

REACTIONS (2)
  - Cough [Recovered/Resolved]
  - Bronchospasm paradoxical [Recovered/Resolved]

NARRATIVE: CASE EVENT DATE: 20180121
